FAERS Safety Report 6890209-X (Version None)
Quarter: 2010Q3

REPORT INFORMATION
  Report Type: 
  Country: None (occurrence: None)
  Receive Date: 20100730
  Receipt Date: 20080908
  Transmission Date: 20110219
  Serious: No
  Sender: FDA-Public Use
  Company Number: US-PFIZER INC-2008075131

PATIENT
  Sex: Female
  Weight: 59.09 kg

DRUGS (4)
  1. LIPITOR [Suspect]
     Indication: BLOOD CHOLESTEROL INCREASED
     Dates: end: 20080901
  2. SYNTHROID [Concomitant]
  3. COZAAR [Concomitant]
  4. FOSAMAX [Concomitant]

REACTIONS (4)
  - ARTHRALGIA [None]
  - ASTHENIA [None]
  - FATIGUE [None]
  - HEADACHE [None]
